FAERS Safety Report 19129308 (Version 1)
Quarter: 2021Q2

REPORT INFORMATION
  Report Type: Spontaneous
  Country: CN (occurrence: CN)
  Receive Date: 20210413
  Receipt Date: 20210413
  Transmission Date: 20210717
  Serious: Yes (Other)
  Sender: FDA-Public Use
  Company Number: CN-GLAXOSMITHKLINE-CN2021APC081012

PATIENT
  Age: 69 Year
  Sex: Male

DRUGS (1)
  1. SERETIDE [Suspect]
     Active Substance: FLUTICASONE PROPIONATE\SALMETEROL XINAFOATE
     Indication: EMPHYSEMA
     Dosage: 1 DF, QD, 50/250UG
     Route: 055

REACTIONS (7)
  - Dysphonia [Unknown]
  - Foreign body in throat [Unknown]
  - Laryngeal mass [Not Recovered/Not Resolved]
  - Oropharyngeal pain [Unknown]
  - Wrong technique in product usage process [Unknown]
  - Product use in unapproved indication [Unknown]
  - Dry throat [Recovered/Resolved]
